FAERS Safety Report 6715392-8 (Version None)
Quarter: 2010Q2

REPORT INFORMATION
  Report Type: 
  Country: None (occurrence: None)
  Receive Date: 20100507
  Receipt Date: 20100428
  Transmission Date: 20101027
  Serious: Yes (Hospitalization, Other)
  Sender: FDA-Public Use
  Company Number: DE-SANOFI-AVENTIS-2010SA022365

PATIENT
  Age: 64 Year
  Sex: Female
  Weight: 65 kg

DRUGS (7)
  1. MULTAQ [Suspect]
     Route: 048
     Dates: start: 20100201, end: 20100416
  2. ATENOLOL [Concomitant]
     Route: 048
     Dates: start: 20000101
  3. ATENOLOL [Concomitant]
     Indication: ATRIAL FIBRILLATION
     Route: 048
     Dates: start: 20000101
  4. OLMESARTAN MEDOXOMIL [Concomitant]
     Route: 048
     Dates: start: 20050101, end: 20100401
  5. DOXACOR [Concomitant]
     Indication: DRUG USE FOR UNKNOWN INDICATION
     Route: 048
     Dates: start: 20050101
  6. ACETYLSALICYLIC ACID [Concomitant]
     Indication: DRUG USE FOR UNKNOWN INDICATION
     Route: 048
     Dates: start: 20070101, end: 20100401
  7. OXAZEPAM [Concomitant]
     Indication: DRUG USE FOR UNKNOWN INDICATION
     Route: 048

REACTIONS (5)
  - GASTROINTESTINAL DISORDER [None]
  - HAEMOGLOBIN DECREASED [None]
  - LEUKOPENIA [None]
  - PANCYTOPENIA [None]
  - PLATELET COUNT DECREASED [None]
